FAERS Safety Report 10243043 (Version 1)
Quarter: 2014Q2

REPORT INFORMATION
  Report Type: Spontaneous
  Country: US (occurrence: US)
  Receive Date: 20140618
  Receipt Date: 20140618
  Transmission Date: 20141212
  Serious: No
  Sender: FDA-Public Use
  Company Number: US-009507513-1406USA005740

PATIENT
  Age: 22 Year
  Sex: Female

DRUGS (2)
  1. NEXPLANON [Suspect]
     Indication: CONTRACEPTION
     Dosage: UNK
     Route: 059
     Dates: start: 20130808
  2. CIPROFLOXACIN [Concomitant]
     Indication: CYSTITIS
     Dosage: 500 MG, BID

REACTIONS (3)
  - Thrombosis [Unknown]
  - Nausea [Unknown]
  - Dizziness [Unknown]
